FAERS Safety Report 11308259 (Version 1)
Quarter: 2015Q3

REPORT INFORMATION
  Report Type: Spontaneous
  Country: US (occurrence: US)
  Receive Date: 20150724
  Receipt Date: 20150724
  Transmission Date: 20151125
  Serious: Yes (Other)
  Sender: FDA-Public Use
  Company Number: US-ROCHE-1611436

PATIENT
  Age: 46 Year
  Sex: Female

DRUGS (1)
  1. RITUXAN [Suspect]
     Active Substance: RITUXIMAB
     Indication: MULTIPLE SCLEROSIS
     Route: 065
     Dates: start: 20150514

REACTIONS (18)
  - Joint crepitation [Not Recovered/Not Resolved]
  - Fatigue [Not Recovered/Not Resolved]
  - Pruritus [Not Recovered/Not Resolved]
  - Pharyngeal oedema [Not Recovered/Not Resolved]
  - Dysphagia [Unknown]
  - Deafness [Unknown]
  - Pain [Not Recovered/Not Resolved]
  - Serum sickness [Unknown]
  - Mobility decreased [Recovered/Resolved]
  - Malaise [Unknown]
  - Pyrexia [Unknown]
  - Vomiting [Unknown]
  - Ear swelling [Not Recovered/Not Resolved]
  - Stomatitis [Unknown]
  - Urticaria [Unknown]
  - Dyspnoea [Unknown]
  - Cough [Unknown]
  - Erythema [Not Recovered/Not Resolved]
